FAERS Safety Report 5336802-7 (Version None)
Quarter: 2007Q2

REPORT INFORMATION
  Report Type: 
  Country: None (occurrence: None)
  Receive Date: 20070524
  Receipt Date: 20070524
  Transmission Date: 20071010
  Serious: Yes (Hospitalization)
  Sender: FDA-Public Use
  Company Number: None

PATIENT
  Sex: Male
  Weight: 75.2971 kg

DRUGS (1)
  1. ZEVALIN [Suspect]

REACTIONS (5)
  - BLOOD PRESSURE DIASTOLIC DECREASED [None]
  - DECREASED APPETITE [None]
  - DIZZINESS [None]
  - MUCOSAL DRYNESS [None]
  - SKIN TURGOR DECREASED [None]
